FAERS Safety Report 5959230-X (Version None)
Quarter: 2008Q4

REPORT INFORMATION
  Report Type: 
  Country: None (occurrence: None)
  Receive Date: 20081120
  Receipt Date: 20080904
  Transmission Date: 20090506
  Serious: No
  Sender: FDA-Public Use
  Company Number: A0746930A

PATIENT
  Age: 70 Year
  Sex: Female

DRUGS (1)
  1. BUPROPION HYDROCHLORIDE [Suspect]
     Indication: DEPRESSION
     Dosage: 150MG TWICE PER DAY
     Route: 048
     Dates: start: 20050101, end: 20050101

REACTIONS (3)
  - ABDOMINAL DISCOMFORT [None]
  - NAUSEA [None]
  - OESOPHAGEAL PAIN [None]
